FAERS Safety Report 14585245 (Version 1)
Quarter: 2018Q1

REPORT INFORMATION
  Report Type: Spontaneous
  Country: DE (occurrence: DE)
  Receive Date: 20180301
  Receipt Date: 20180301
  Transmission Date: 20180509
  Serious: Yes (Other)
  Sender: FDA-Public Use
  Company Number: DE-AXELLIA-001426

PATIENT
  Sex: Male

DRUGS (2)
  1. VANCOMYCIN [Suspect]
     Active Substance: VANCOMYCIN
     Indication: CYSTITIS
  2. EREMFAT [Suspect]
     Active Substance: RIFAMPIN
     Indication: CYSTITIS

REACTIONS (2)
  - Drug ineffective [Unknown]
  - Off label use [Unknown]
